FAERS Safety Report 9353288 (Version 3)
Quarter: 2013Q4

REPORT INFORMATION
  Report Type: Spontaneous
  Country: US (occurrence: US)
  Receive Date: 20130618
  Receipt Date: 20131030
  Transmission Date: 20140711
  Serious: Yes (Other)
  Sender: FDA-Public Use
  Company Number: US-PFIZER INC-2013181148

PATIENT
  Age: 63 Year
  Sex: Male

DRUGS (12)
  1. INLYTA [Suspect]
     Indication: METASTATIC RENAL CELL CARCINOMA
     Dosage: 5 MG, 2X/DAY (CYCLE 2, DAY 1)
     Route: 048
     Dates: start: 20130510
  2. LOVENOX [Concomitant]
     Indication: CARDIAC VENTRICULAR THROMBOSIS
     Dosage: UNK
  3. ASPIRIN [Concomitant]
     Dosage: UNK
  4. JANUVIA [Concomitant]
     Dosage: UNK
  5. LIPITOR [Concomitant]
     Dosage: UNK
  6. METFORMIN [Concomitant]
     Dosage: UNK
  7. TOPROL [Concomitant]
     Dosage: UNK
  8. VITAMIN D [Concomitant]
     Dosage: UNK
  9. TRICOR [Concomitant]
     Dosage: UNK
  10. CENTRUM SILVER [Concomitant]
     Dosage: UNK
  11. LEVOTHYROXINE [Concomitant]
     Dosage: UNK
  12. IMODIUM [Concomitant]
     Dosage: UNK

REACTIONS (13)
  - Haemorrhoidal haemorrhage [Unknown]
  - Diarrhoea [Recovered/Resolved]
  - Speech disorder [Unknown]
  - Nocturia [Unknown]
  - Pain in extremity [Unknown]
  - Dysphonia [Unknown]
  - Wheezing [Recovered/Resolved]
  - Dyspnoea [Recovered/Resolved]
  - Haemoptysis [Unknown]
  - Fatigue [Recovering/Resolving]
  - Flank pain [Unknown]
  - Disease progression [Unknown]
  - Metastatic renal cell carcinoma [Unknown]
